FAERS Safety Report 5602646-1 (Version None)
Quarter: 2008Q1

REPORT INFORMATION
  Report Type: 
  Country: None (occurrence: None)
  Receive Date: 20080125
  Receipt Date: 20080122
  Transmission Date: 20080703
  Serious: Yes (Other)
  Sender: FDA-Public Use
  Company Number: NL-BRISTOL-MYERS SQUIBB COMPANY-14051429

PATIENT
  Age: 56 Year
  Sex: Female

DRUGS (3)
  1. DOXORUBICIN HCL [Suspect]
     Indication: MALIGNANT FIBROUS HISTIOCYTOMA
     Route: 042
  2. MONOHYDROXYETHYLRUTOSIDES [Suspect]
     Indication: MALIGNANT FIBROUS HISTIOCYTOMA
     Dosage: AS A 10 MIN INFUSION.
     Route: 042
  3. RADIATION THERAPY [Suspect]
     Indication: MALIGNANT FIBROUS HISTIOCYTOMA

REACTIONS (2)
  - CARDIOTOXICITY [None]
  - PERICARDIAL EFFUSION [None]
